FAERS Safety Report 10551188 (Version 1)
Quarter: 2014Q4

REPORT INFORMATION
  Report Type: Report from Study
  Country: BR (occurrence: BR)
  Receive Date: 20141029
  Receipt Date: 20141029
  Transmission Date: 20150529
  Serious: Yes (Hospitalization)
  Sender: FDA-Public Use
  Company Number: BR-ABBVIE-14K-020-1297640-00

PATIENT
  Sex: Male
  Weight: 60 kg

DRUGS (4)
  1. PREDNISONE. [Concomitant]
     Active Substance: PREDNISONE
     Route: 048
  2. METHOTREXATE [Concomitant]
     Active Substance: METHOTREXATE
     Indication: RHEUMATOID ARTHRITIS
     Route: 048
     Dates: start: 201402
  3. PREDNISONE. [Concomitant]
     Active Substance: PREDNISONE
     Indication: RHEUMATOID ARTHRITIS
     Route: 048
     Dates: start: 2013
  4. HUMIRA [Suspect]
     Active Substance: ADALIMUMAB
     Indication: RHEUMATOID ARTHRITIS
     Route: 058
     Dates: start: 201307

REACTIONS (10)
  - Nervousness [Recovering/Resolving]
  - Spinal deformity [Unknown]
  - Coccydynia [Recovering/Resolving]
  - Depression [Recovering/Resolving]
  - Sacroiliitis [Unknown]
  - Activities of daily living impaired [Unknown]
  - Rheumatoid arthritis [Unknown]
  - Joint swelling [Recovering/Resolving]
  - Meniscus injury [Recovering/Resolving]
  - Arthralgia [Recovering/Resolving]

NARRATIVE: CASE EVENT DATE: 2013
